FAERS Safety Report 19687944 (Version 2)
Quarter: 2021Q3

REPORT INFORMATION
  Report Type: Spontaneous
  Country: EC (occurrence: EC)
  Receive Date: 20210811
  Receipt Date: 20210915
  Transmission Date: 20211014
  Serious: Yes (Other)
  Sender: FDA-Public Use
  Company Number: EC-GALDERMA-EC2021015021

PATIENT

DRUGS (2)
  1. SOOLANTRA [Suspect]
     Active Substance: IVERMECTIN
     Indication: GRANULOMATOUS ROSACEA
     Dosage: 1 DOSAGE FORM, QD
     Route: 061
     Dates: start: 20210724, end: 20210725
  2. DOXYCILLIN [Concomitant]
     Active Substance: DOXYCYCLINE HYDROCHLORIDE
     Indication: ROSACEA
     Route: 065

REACTIONS (9)
  - Application site exfoliation [Recovering/Resolving]
  - Dermatitis [Recovering/Resolving]
  - Application site erythema [Recovering/Resolving]
  - Application site pustules [Recovering/Resolving]
  - Skin burning sensation [Recovering/Resolving]
  - Pyoderma [Recovering/Resolving]
  - Intentional product misuse [Recovered/Resolved]
  - Application site pruritus [Recovering/Resolving]
  - Staphylococcal infection [Recovering/Resolving]

NARRATIVE: CASE EVENT DATE: 202107
